FAERS Safety Report 4746208-7 (Version None)
Quarter: 2005Q3

REPORT INFORMATION
  Report Type: 
  Country: None (occurrence: None)
  Receive Date: 20050816
  Receipt Date: 20040903
  Transmission Date: 20060218
  Serious: Yes (Hospitalization)
  Sender: FDA-Public Use
  Company Number: CH-MERCK-0409CHE00009

PATIENT
  Age: 60 Year
  Sex: Female

DRUGS (6)
  1. VIOXX [Suspect]
     Indication: BACK PAIN
     Route: 048
     Dates: start: 20040802, end: 20040809
  2. TIZANIDINE HYDROCHLORIDE [Suspect]
     Route: 048
     Dates: start: 20040807, end: 20040807
  3. TIZANIDINE HYDROCHLORIDE [Suspect]
     Route: 048
     Dates: start: 20040808, end: 20040808
  4. TIZANIDINE HYDROCHLORIDE [Suspect]
     Route: 048
     Dates: start: 20040809, end: 20040809
  5. DICLOFENAC SODIUM [Suspect]
     Indication: BACK PAIN
     Route: 048
     Dates: end: 20040809
  6. HERBS (UNSPECIFIED) [Concomitant]
     Route: 048

REACTIONS (23)
  - ABDOMINAL PAIN [None]
  - ALANINE AMINOTRANSFERASE INCREASED [None]
  - ASPARTATE AMINOTRANSFERASE INCREASED [None]
  - BACK PAIN [None]
  - BLOOD ALKALINE PHOSPHATASE INCREASED [None]
  - BRADYCARDIA [None]
  - CHEST DISCOMFORT [None]
  - DIARRHOEA [None]
  - DRUG INTERACTION [None]
  - DYSPNOEA [None]
  - FIBRIN D DIMER INCREASED [None]
  - GAMMA-GLUTAMYLTRANSFERASE INCREASED [None]
  - HAEMANGIOMA OF LIVER [None]
  - HEPATIC CYST [None]
  - HEPATIC LESION [None]
  - HYPERHIDROSIS [None]
  - LIVER DISORDER [None]
  - LIVER FUNCTION TEST ABNORMAL [None]
  - PLEURAL EFFUSION [None]
  - PULMONARY HYPERTENSION [None]
  - RIGHT VENTRICULAR FAILURE [None]
  - SINUS BRADYCARDIA [None]
  - VOMITING [None]
